FAERS Safety Report 6754929-X (Version None)
Quarter: 2010Q2

REPORT INFORMATION
  Report Type: 
  Country: None (occurrence: None)
  Receive Date: 20100603
  Receipt Date: 20100527
  Transmission Date: 20101027
  Serious: Yes (Other)
  Sender: FDA-Public Use
  Company Number: CH-GENENTECH-302379

PATIENT
  Age: 36 Year
  Sex: Male

DRUGS (6)
  1. MABTHERA [Suspect]
     Indication: HODGKIN'S DISEASE
     Dosage: UNK UNK, Q21D
     Route: 042
  2. CYCLOPHOSPHAMIDE [Concomitant]
     Indication: HODGKIN'S DISEASE
     Dosage: UNK UNK, Q21D
  3. DOXORUBICIN HCL [Concomitant]
     Indication: HODGKIN'S DISEASE
     Dosage: UNK
  4. VINCRISTINE [Concomitant]
     Indication: HODGKIN'S DISEASE
     Dosage: UNK
  5. PREDNISONE TAB [Concomitant]
     Indication: HODGKIN'S DISEASE
     Dosage: UNK
  6. ETOPOSIDE [Concomitant]
     Indication: HODGKIN'S DISEASE
     Dosage: UNK

REACTIONS (2)
  - HODGKIN'S DISEASE [None]
  - RESPIRATORY DISORDER [None]
